FAERS Safety Report 7864466-7 (Version None)
Quarter: 2011Q4

REPORT INFORMATION
  Report Type: 
  Country: None (occurrence: None)
  Receive Date: 20111028
  Receipt Date: 20111021
  Transmission Date: 20120403
  Serious: Yes (Hospitalization)
  Sender: FDA-Public Use
  Company Number: FR-UCBSA-042718

PATIENT
  Age: 25 Year
  Sex: Female
  Weight: 49 kg

DRUGS (3)
  1. VIMPAT [Suspect]
     Indication: EPILEPSY
     Route: 048
     Dates: start: 20090901, end: 20110601
  2. LYRICA [Concomitant]
     Indication: EPILEPSY
     Route: 048
     Dates: start: 20060101
  3. LAMICTAL [Concomitant]
     Indication: EPILEPSY
     Dosage: 150 X 2
     Route: 048
     Dates: start: 20060101, end: 20110601

REACTIONS (8)
  - AGITATION [None]
  - ASPIRATION [None]
  - LIVER DISORDER [None]
  - STATUS EPILEPTICUS [None]
  - RASH [None]
  - PULMONARY EMBOLISM [None]
  - ABNORMAL BEHAVIOUR [None]
  - SKIN LESION [None]
